FAERS Safety Report 14988065 (Version 1)
Quarter: 2018Q2

REPORT INFORMATION
  Report Type: Spontaneous
  Country: ZA (occurrence: ZA)
  Receive Date: 20180608
  Receipt Date: 20180608
  Transmission Date: 20180711
  Serious: Yes (Death)
  Sender: FDA-Public Use
  Company Number: ZA-PFIZER INC-2018232426

PATIENT
  Age: 82 Year
  Sex: Female

DRUGS (6)
  1. ECOTRIN [Suspect]
     Active Substance: ASPIRIN
     Dosage: 81 MG, UNK
  2. ELTROXIN [Suspect]
     Active Substance: LEVOTHYROXINE
     Dosage: 100 UG, UNK
  3. TOPRAFLUX [Suspect]
     Active Substance: PANTOPRAZOLE SODIUM
     Dosage: 40 MG, UNK
  4. ZOPAX [Suspect]
     Active Substance: ALPRAZOLAM
     Dosage: 0.5 MG, UNK
  5. ASPAVOR [Suspect]
     Active Substance: ATORVASTATIN
     Dosage: 10 MG, UNK
  6. ZOLPIHEXAL [Suspect]
     Active Substance: ZOLPIDEM TARTRATE
     Dosage: 10 MG, UNK

REACTIONS (1)
  - Death [Fatal]
